FAERS Safety Report 7508680-9 (Version None)
Quarter: 2011Q2

REPORT INFORMATION
  Report Type: 
  Country: None (occurrence: None)
  Receive Date: 20110527
  Receipt Date: 20100618
  Transmission Date: 20111010
  Serious: No
  Sender: FDA-Public Use
  Company Number: A0866100A

PATIENT
  Age: 9 Year
  Sex: Male

DRUGS (3)
  1. PREDNISONE [Concomitant]
  2. VENTOLIN [Suspect]
     Route: 055
  3. KEFLEX [Concomitant]

REACTIONS (2)
  - THERMAL BURN [None]
  - PRODUCT QUALITY ISSUE [None]
